FAERS Safety Report 5304377-4 (Version None)
Quarter: 2007Q2

REPORT INFORMATION
  Report Type: 
  Country: None (occurrence: None)
  Receive Date: 20070423
  Receipt Date: 20070412
  Transmission Date: 20071010
  Serious: Yes (Life-Threatening)
  Sender: FDA-Public Use
  Company Number: GB-ROCHE-493431

PATIENT
  Age: 80 Year
  Sex: Female
  Weight: 72 kg

DRUGS (3)
  1. XENICAL [Suspect]
     Indication: OBESITY
     Route: 048
     Dates: start: 20070311, end: 20070406
  2. FUROSEMIDE [Concomitant]
     Indication: HYPERTENSION
     Route: 048
  3. PROCHLORPERAZINE [Concomitant]
     Indication: VERTIGO
     Route: 048

REACTIONS (3)
  - ANXIETY [None]
  - CHEST DISCOMFORT [None]
  - HYPERHIDROSIS [None]
